FAERS Safety Report 13380020 (Version 4)
Quarter: 2018Q4

REPORT INFORMATION
  Report Type: Spontaneous
  Country: FR (occurrence: FR)
  Receive Date: 20170328
  Receipt Date: 20181204
  Transmission Date: 20190204
  Serious: Yes (Disabling, Congenital Anomaly, Other)
  Sender: FDA-Public Use
  Company Number: FR-ABBVIE-17P-056-1923618-00

PATIENT
  Sex: Female

DRUGS (1)
  1. DEPAKINE CHRONO [Suspect]
     Active Substance: VALPROATE SODIUM
     Indication: MATERNAL EXPOSURE TIMING UNSPECIFIED
     Route: 064

REACTIONS (31)
  - Strabismus [Unknown]
  - Microcephaly [Unknown]
  - Speech disorder developmental [Unknown]
  - Tonsillectomy [Unknown]
  - Enuresis [Unknown]
  - Premature baby [Unknown]
  - Dysmorphism [Unknown]
  - Mental disorder [Unknown]
  - Hirsutism [Unknown]
  - Incontinence [Unknown]
  - Low birth weight baby [Unknown]
  - Vesicoureteric reflux [Unknown]
  - Social problem [Unknown]
  - Astigmatism [Unknown]
  - Psychomotor retardation [Unknown]
  - Impulsive behaviour [Unknown]
  - Encopresis [Unknown]
  - Foetal exposure during pregnancy [Unknown]
  - Scoliosis [Unknown]
  - Anxiety [Unknown]
  - Foetal anticonvulsant syndrome [Unknown]
  - Feeding disorder [Recovered/Resolved]
  - Partial seizures [Unknown]
  - Knee deformity [Unknown]
  - Foot deformity [Unknown]
  - Foetal growth restriction [Unknown]
  - Myopia [Unknown]
  - Clinodactyly [Unknown]
  - Abnormal behaviour [Unknown]
  - Haemangioma [Unknown]
  - Ear infection [Unknown]

NARRATIVE: CASE EVENT DATE: 1993
